FAERS Safety Report 9246821 (Version 1)
Quarter: 2013Q2

REPORT INFORMATION
  Report Type: Spontaneous
  Country: PL (occurrence: PL)
  Receive Date: 20130422
  Receipt Date: 20130422
  Transmission Date: 20140414
  Serious: Yes (Other)
  Sender: FDA-Public Use
  Company Number: PHHY2013PL037727

PATIENT
  Age: 35 Year
  Sex: Female

DRUGS (11)
  1. CICLOSPORIN [Suspect]
     Indication: RHEUMATOID ARTHRITIS
     Dosage: 100-150 MG, UNK
  2. LEFLUNOMIDE [Suspect]
     Indication: RHEUMATOID ARTHRITIS
  3. METHOTREXATE [Suspect]
     Indication: RHEUMATOID ARTHRITIS
     Dosage: 15 MG, PER WEEK
  4. METHOTREXATE [Suspect]
     Dosage: 20 MG, PER WEEK
  5. METHOTREXATE [Suspect]
     Dosage: 25 MG, PER WEEK
  6. CHLOROQUINE [Suspect]
     Indication: RHEUMATOID ARTHRITIS
  7. NSAID^S [Suspect]
     Indication: RHEUMATOID ARTHRITIS
  8. GLUCOCORTICOSTEROIDS [Suspect]
     Indication: RHEUMATOID ARTHRITIS
  9. ETANERCEPT [Concomitant]
     Indication: RHEUMATOID ARTHRITIS
     Dosage: 50 MG, WEEKLY
     Route: 058
  10. INFLIXIMAB [Concomitant]
     Indication: RHEUMATOID ARTHRITIS
  11. SULFASALAZINE [Concomitant]
     Indication: RHEUMATOID ARTHRITIS

REACTIONS (3)
  - Rheumatoid arthritis [Unknown]
  - Oral mucosa erosion [Unknown]
  - Drug ineffective [Unknown]
